FAERS Safety Report 8308830-0 (Version None)
Quarter: 2012Q2

REPORT INFORMATION
  Report Type: 
  Country: None (occurrence: None)
  Receive Date: 20120424
  Receipt Date: 20120413
  Transmission Date: 20120825
  Serious: Yes (Hospitalization)
  Sender: FDA-Public Use
  Company Number: US-ACTELION-A-NJ2012-64213

PATIENT

DRUGS (3)
  1. COUMADIN [Concomitant]
  2. ACETYLSALICYLIC ACID SRT [Concomitant]
  3. TRACLEER [Suspect]
     Indication: PULMONARY ARTERIAL HYPERTENSION
     Dosage: UNK
     Route: 048
     Dates: start: 20101110

REACTIONS (4)
  - CARDIAC ABLATION [None]
  - NASOPHARYNGITIS [None]
  - HYPERTENSION [None]
  - DYSPNOEA [None]
